FAERS Safety Report 8025044-2 (Version None)
Quarter: 2012Q1

REPORT INFORMATION
  Report Type: 
  Country: None (occurrence: None)
  Receive Date: 20120105
  Receipt Date: 20111230
  Transmission Date: 20120608
  Serious: Yes (Hospitalization)
  Sender: FDA-Public Use
  Company Number: CH-MERCK-1201USA00202

PATIENT
  Age: 51 Year
  Sex: Female

DRUGS (3)
  1. SPIRALGIN [Suspect]
     Route: 048
     Dates: start: 20111017, end: 20111017
  2. NOROXIN [Suspect]
     Route: 048
     Dates: start: 20111017, end: 20111017
  3. DICLOFENAC SODIUM [Suspect]
     Route: 048
     Dates: start: 20111017, end: 20111017

REACTIONS (2)
  - OVERDOSE [None]
  - SUICIDE ATTEMPT [None]
